FAERS Safety Report 21813274 (Version 2)
Quarter: 2023Q1

REPORT INFORMATION
  Report Type: Spontaneous
  Country: US (occurrence: US)
  Receive Date: 20230103
  Receipt Date: 20230208
  Transmission Date: 20230417
  Serious: Yes (Other)
  Sender: FDA-Public Use
  Company Number: US-BIOVITRUM-2022US15751

PATIENT
  Sex: Female

DRUGS (3)
  1. DOPTELET [Suspect]
     Active Substance: AVATROMBOPAG MALEATE
     Indication: Immune thrombocytopenia
     Dates: start: 20221224
  2. DOPTELET [Suspect]
     Active Substance: AVATROMBOPAG MALEATE
     Dates: start: 20221214, end: 20221222
  3. DOPTELET [Suspect]
     Active Substance: AVATROMBOPAG MALEATE
     Dates: start: 20221223, end: 20221225

REACTIONS (10)
  - Haemorrhage [Unknown]
  - Guillain-Barre syndrome [Unknown]
  - Neuropathy peripheral [Unknown]
  - Feeding disorder [Unknown]
  - Condition aggravated [Unknown]
  - Fall [Unknown]
  - Dysgeusia [Unknown]
  - Platelet count decreased [Unknown]
  - Wheelchair user [Unknown]
  - Therapy non-responder [Unknown]
